FAERS Safety Report 21723504 (Version 2)
Quarter: 2022Q4

REPORT INFORMATION
  Report Type: Spontaneous
  Country: FR (occurrence: FR)
  Receive Date: 20221213
  Receipt Date: 20221228
  Transmission Date: 20230113
  Serious: Yes (Hospitalization)
  Sender: FDA-Public Use
  Company Number: None

PATIENT
  Age: 29 Year
  Sex: Female
  Weight: 69 kg

DRUGS (7)
  1. PROZAC [Interacting]
     Active Substance: FLUOXETINE HYDROCHLORIDE
     Indication: Anxiety
     Dosage: 20 MG, DAILY
     Route: 048
  2. CYAMEMAZINE [Interacting]
     Active Substance: CYAMEMAZINE
     Indication: Anxiety
     Dosage: 5 MG, PRN
     Route: 048
  3. XYREM [Interacting]
     Active Substance: SODIUM OXYBATE
     Indication: Hypersomnia
     Dosage: 6 G, DAILY
     Route: 048
  4. SUNOSI [Concomitant]
     Active Substance: SOLRIAMFETOL
     Indication: Hypersomnia
     Dosage: 150 MG, DAILY
     Route: 048
  5. MODAFINIL [Concomitant]
     Active Substance: MODAFINIL
     Indication: Hypersomnia
     Dosage: 200 MG, DAILY
     Route: 048
  6. WAKIX [Concomitant]
     Active Substance: PITOLISANT HYDROCHLORIDE
     Indication: Hypersomnia
     Dosage: 36 MG, DAILY
     Route: 048
  7. PITOLISANT [Concomitant]
     Active Substance: PITOLISANT
     Indication: Product used for unknown indication
     Dosage: UNK

REACTIONS (3)
  - Fall [Recovering/Resolving]
  - Drug interaction [Unknown]
  - Off label use [Unknown]

NARRATIVE: CASE EVENT DATE: 20220922
